FAERS Safety Report 7319816-7 (Version None)
Quarter: 2011Q1

REPORT INFORMATION
  Report Type: 
  Country: None (occurrence: None)
  Receive Date: 20110228
  Receipt Date: 20101006
  Transmission Date: 20110831
  Serious: No
  Sender: FDA-Public Use
  Company Number: A0885239A

PATIENT
  Age: 39 Year
  Sex: Female

DRUGS (3)
  1. LAMICTAL [Suspect]
     Indication: EPILEPSY
     Dosage: 200MG FOUR TIMES PER DAY
     Route: 048
     Dates: start: 20100917
  2. PRENATAL VITAMINS [Concomitant]
  3. LAMOTRIGINE [Suspect]
     Indication: EPILEPSY
     Route: 065
     Dates: end: 20100917

REACTIONS (2)
  - DRUG INEFFECTIVE [None]
  - DRUG EXPOSURE DURING PREGNANCY [None]
